FAERS Safety Report 12690134 (Version 1)
Quarter: 2016Q3

REPORT INFORMATION
  Report Type: Spontaneous
  Country: CH (occurrence: CH)
  Receive Date: 20160826
  Receipt Date: 20160826
  Transmission Date: 20161109
  Serious: Yes (Other)
  Sender: FDA-Public Use
  Company Number: CH-TEVA-686437ISR

PATIENT
  Age: 100 Year
  Sex: Female

DRUGS (24)
  1. MARCOUMAR [Suspect]
     Active Substance: PHENPROCOUMON
     Dosage: 3 MG, ONCE IN TOTAL
     Route: 065
     Dates: start: 20160723, end: 20160723
  2. AMLODIPINE [Concomitant]
     Active Substance: AMLODIPINE BESYLATE
     Dosage: 7.5 MILLIGRAM DAILY; STRENGTH 5 MG, 0.5 DOSAGE FORM IN THE MORNING, 1 DOSAGE FORM AT NIGHT
     Route: 065
  3. NOVALGIN [Concomitant]
     Active Substance: METAMIZOLE SODIUM
     Dosage: STRENGTH UNSPECIFIED, 20 DROPS AS NEEDED
     Route: 065
  4. LASIX [Concomitant]
     Active Substance: FUROSEMIDE
  5. ZANIDIP [Suspect]
     Active Substance: LERCANIDIPINE HYDROCHLORIDE
     Dosage: 10 MG, ONCE IN TOTAL
     Route: 065
     Dates: start: 20160723, end: 20160723
  6. NOCTAMID [Concomitant]
     Active Substance: LORMETAZEPAM
     Dosage: .5 DOSAGE FORMS DAILY; STRENGTH UNSPECIFIED, 0.5 DOSAGE FORM AT NIGHT
     Route: 065
  7. CITALOPRAM [Suspect]
     Active Substance: CITALOPRAM HYDROBROMIDE
     Dosage: 20 MILLIGRAM DAILY;
     Route: 048
  8. JANUVIA [Suspect]
     Active Substance: SITAGLIPTIN PHOSPHATE
     Dosage: 25 MG, ONCE IN TOTAL
     Route: 065
     Dates: start: 20160723, end: 20160723
  9. MORPHINE [Suspect]
     Active Substance: MORPHINE
     Dosage: 60 MG, ONCE IN TOTAL
     Route: 048
     Dates: start: 20160723, end: 20160723
  10. METO ZEROK [Concomitant]
     Active Substance: METOPROLOL SUCCINATE
     Dosage: 50 MILLIGRAM DAILY; STRENGTH 50 MG, 0.5 DOSAGE FORM IN THE MORNING, 0.5 DOSAGE FORM IN THE EVENING
     Route: 065
  11. LASIX [Concomitant]
     Active Substance: FUROSEMIDE
     Dosage: 20 MILLIGRAM DAILY;
     Route: 042
     Dates: start: 20160724, end: 20160724
  12. LASEA [Concomitant]
     Dosage: 1 MILLIGRAM DAILY; 1 DOSAGE FORM AT NIGHT
     Route: 065
  13. NOCTAMID [Concomitant]
     Active Substance: LORMETAZEPAM
  14. VALERIAN [Concomitant]
     Active Substance: VALERIAN
     Dosage: 20 GTT DAILY; STRENGTH UNKNOWN, 20 DROPS AT NIGHT
     Route: 065
  15. UBRETID [Concomitant]
     Active Substance: DISTIGMINE BROMIDE
     Dosage: 5 MILLIGRAM DAILY; STRENGTH 5 MG, 0.5 DOSAGE FORM IN THE MORNING, 0.5 DOSAGE FORM IN THE EVENING
     Route: 065
  16. NOCTAMID [Concomitant]
     Active Substance: LORMETAZEPAM
     Dosage: 1 MILLIGRAM DAILY; STRENGTH 1 MG, 1 DOSAGE FORM AT NIGHT
     Route: 065
  17. SANALEPSI N [Concomitant]
     Active Substance: DOXYLAMINE SUCCINATE
     Dosage: 20 DOSAGE FORMS DAILY; STRENGTH UNSPECIFIED, 20 DOSAGE FORMS AT NIGHT
     Route: 065
  18. TAMSULOSIN ACTAVIS [Concomitant]
     Dosage: .4 MILLIGRAM DAILY; STRENGTH 0.4 MG, 1 DOSAGE FORM IN THE MORNING
     Route: 065
  19. BISOPROLOL [Suspect]
     Active Substance: BISOPROLOL
     Dosage: 2.5 MG, ONCE IN TOTAL
     Route: 065
     Dates: start: 20160723, end: 20160723
  20. METFORMIN [Suspect]
     Active Substance: METFORMIN HYDROCHLORIDE
     Dosage: 500 MG, ONCE IN TOTAL
     Route: 065
     Dates: start: 20160723, end: 20160723
  21. ASPIRIN CARDIO [Concomitant]
     Active Substance: ASPIRIN
     Dosage: 100 MILLIGRAM DAILY; STRENGTH 100 MG, 1 DOSAGE FORM AT LUNCH TIME
     Route: 065
  22. OMEPRAZOL ACTAVIS [Concomitant]
     Active Substance: OMEPRAZOLE
     Dosage: 20 MILLIGRAM DAILY; STRENGTH 20 MG, 1 DOSAGE FORM IN THE MORNING
     Route: 065
  23. NITRO [Concomitant]
     Active Substance: NITROGLYCERIN
     Dosage: 2 DOSAGE FORMS DAILY; 2 PUFFS OF ^NITRO^, PROBABLY NITROGLYCERIN
     Route: 060
     Dates: start: 20160724, end: 20160724
  24. LASIX [Concomitant]
     Active Substance: FUROSEMIDE
     Dosage: 40 MILLIGRAM DAILY; STRENGTH 40 MG, 1 DOSAGE FORM IN THE MORNING
     Route: 065

REACTIONS (6)
  - Wrong drug administered [Unknown]
  - Infection [Unknown]
  - Electrocardiogram QT prolonged [Unknown]
  - Pulmonary oedema [Unknown]
  - Renal impairment [Unknown]
  - Myocardial necrosis marker increased [Unknown]

NARRATIVE: CASE EVENT DATE: 20160724
